FAERS Safety Report 7924363-5 (Version None)
Quarter: 2011Q4

REPORT INFORMATION
  Report Type: 
  Country: None (occurrence: None)
  Receive Date: 20111117
  Receipt Date: 20110322
  Transmission Date: 20120403
  Serious: No
  Sender: FDA-Public Use
  Company Number: US-AMGEN-USASP2011015539

PATIENT
  Age: 55 Year
  Sex: Male

DRUGS (2)
  1. ENBREL [Suspect]
     Indication: CROHN'S DISEASE
     Dosage: 50 MG, QWK
     Dates: start: 20110315
  2. ENBREL [Suspect]
     Indication: ARTHRITIS

REACTIONS (3)
  - EAR DISCOMFORT [None]
  - JOINT STIFFNESS [None]
  - SINUS DISORDER [None]
